FAERS Safety Report 8511786 (Version 5)
Quarter: 2013Q2

REPORT INFORMATION
  Report Type: Spontaneous
  Country: US (occurrence: US)
  Receive Date: 20120413
  Receipt Date: 20130603
  Transmission Date: 20140414
  Serious: No
  Sender: FDA-Public Use
  Company Number: US-ASTRAZENECA-2011SE62965

PATIENT
  Age: 78 Year
  Sex: Female
  Weight: 87.1 kg

DRUGS (6)
  1. NEXIUM [Suspect]
     Indication: ULCER
     Route: 048
  2. NEXIUM [Suspect]
     Indication: GASTROOESOPHAGEAL REFLUX DISEASE
     Route: 048
  3. OMEPRAZOLE [Suspect]
     Route: 048
  4. PRILOSEC OTC [Suspect]
     Dosage: TWO PER DAY
     Route: 048
  5. PREVACID [Concomitant]
  6. RANITIDINE [Concomitant]

REACTIONS (30)
  - Gastrooesophageal reflux disease [Unknown]
  - Breast abscess [Unknown]
  - Chest discomfort [Unknown]
  - Breast cyst [Unknown]
  - Oesophageal pain [Unknown]
  - Pyrexia [Unknown]
  - Chest pain [Unknown]
  - Osteoarthritis [Unknown]
  - Onychomycosis [Unknown]
  - Pain in extremity [Unknown]
  - Neck pain [Unknown]
  - Gastric disorder [Unknown]
  - Dyspepsia [Unknown]
  - Oropharyngeal pain [Unknown]
  - Urinary incontinence [Unknown]
  - Bronchitis [Unknown]
  - Diabetes mellitus [Unknown]
  - Hypertension [Unknown]
  - Gastritis [Unknown]
  - Decreased appetite [Unknown]
  - Otitis externa [Unknown]
  - Malaise [Unknown]
  - Dysphagia [Unknown]
  - Dyspnoea [Unknown]
  - Nausea [Unknown]
  - Abdominal pain upper [Unknown]
  - Myalgia [Unknown]
  - Arthralgia [Unknown]
  - Intentional drug misuse [Unknown]
  - Drug ineffective [Unknown]
